FAERS Safety Report 6136642-5 (Version None)
Quarter: 2009Q1

REPORT INFORMATION
  Report Type: 
  Country: None (occurrence: None)
  Receive Date: 20090330
  Receipt Date: 20090325
  Transmission Date: 20090719
  Serious: Yes (Other)
  Sender: FDA-Public Use
  Company Number: B0503708A

PATIENT
  Age: 24 Year
  Sex: Female

DRUGS (3)
  1. HEPTODIN [Suspect]
     Dosage: 100MG PER DAY
     Route: 048
     Dates: start: 20071001, end: 20080107
  2. CHINESE TRADITIONAL MEDICINE [Concomitant]
     Dosage: 2CAP THREE TIMES PER DAY
     Route: 048
     Dates: start: 20071001, end: 20080107
  3. TRADITIONAL CHINESE MEDICINE [Concomitant]
     Dosage: 2TAB THREE TIMES PER DAY
     Route: 048
     Dates: start: 20071001, end: 20080107

REACTIONS (2)
  - ABORTION INDUCED [None]
  - DRUG EXPOSURE DURING PREGNANCY [None]
